FAERS Safety Report 20085244 (Version 2)
Quarter: 2021Q4

REPORT INFORMATION
  Report Type: Spontaneous
  Country: US (occurrence: US)
  Receive Date: 20211118
  Receipt Date: 20211130
  Transmission Date: 20220303
  Serious: No
  Sender: FDA-Public Use
  Company Number: US-GLAXOSMITHKLINE-US2021AMR229958

PATIENT
  Sex: Female

DRUGS (2)
  1. ZEJULA [Suspect]
     Active Substance: NIRAPARIB
     Indication: Product used for unknown indication
     Dosage: 300 MG, QD
  2. ZEJULA [Suspect]
     Active Substance: NIRAPARIB
     Dosage: 100 MG, QD

REACTIONS (9)
  - Nausea [Unknown]
  - Vomiting [Not Recovered/Not Resolved]
  - Ageusia [Unknown]
  - Dizziness [Unknown]
  - Rash [Unknown]
  - Decreased appetite [Unknown]
  - Weight decreased [Unknown]
  - Oral blood blister [Unknown]
  - Product dose omission issue [Unknown]
